FAERS Safety Report 5497647-0 (Version None)
Quarter: 2007Q4

REPORT INFORMATION
  Report Type: 
  Country: None (occurrence: None)
  Receive Date: 20071025
  Receipt Date: 20071012
  Transmission Date: 20080405
  Serious: Yes (Death, Hospitalization)
  Sender: FDA-Public Use
  Company Number: IT-RANBAXY-2007RR-10737

PATIENT

DRUGS (2)
  1. ACETAMINOPHEN [Suspect]
     Indication: INFLUENZA LIKE ILLNESS
     Dosage: 600 MG, QD
  2. CHLORPHENIRAMINE TAB [Suspect]
     Indication: INFLUENZA LIKE ILLNESS
     Dosage: 4 MG, QD

REACTIONS (1)
  - HAEMOPHILIA A WITH ANTI FACTOR VIII [None]
